FAERS Safety Report 6602530-0 (Version None)
Quarter: 2010Q1

REPORT INFORMATION
  Report Type: 
  Country: None (occurrence: None)
  Receive Date: 20100217
  Receipt Date: 20100202
  Transmission Date: 20100710
  Serious: Yes (Death, Life-Threatening, Hospitalization, Other)
  Sender: FDA-Public Use
  Company Number: 2009002776

PATIENT
  Age: 55 Year
  Sex: Male

DRUGS (15)
  1. ERLOTINIB HYDROCHLORIDE [Suspect]
     Indication: HEPATIC NEOPLASM MALIGNANT
     Dosage: ORAL
     Route: 048
     Dates: start: 20090820, end: 20090830
  2. ERLOTINIB HYDROCHLORIDE [Suspect]
     Indication: HEPATIC NEOPLASM MALIGNANT
     Dosage: ORAL
     Route: 048
     Dates: start: 20090903
  3. ERLOTINIB HYDROCHLORIDE [Suspect]
  4. SORAFENIB [Suspect]
     Indication: HEPATIC NEOPLASM MALIGNANT
     Dosage: (400 MG), ORAL; (800 MG), ORAL
     Route: 048
     Dates: start: 20090820, end: 20090830
  5. SORAFENIB [Suspect]
     Indication: HEPATIC NEOPLASM MALIGNANT
     Dosage: (400 MG), ORAL; (800 MG), ORAL
     Route: 048
     Dates: start: 20090903
  6. SORAFENIB [Suspect]
     Indication: HEPATIC NEOPLASM MALIGNANT
     Dosage: (400 MG), ORAL; (800 MG), ORAL
     Route: 048
     Dates: start: 20091005
  7. SORAFENIB [Suspect]
  8. ENTECAVIR [Concomitant]
  9. NEXIUM [Concomitant]
  10. COLACE (DOCUSATE SODIUM) [Concomitant]
  11. PEA AND RICE PROTEIN (PROTEIN SUPPLEMENTS) [Concomitant]
  12. COD LIVER OIL FORTIFIED TAB [Concomitant]
  13. CALCIUM MAGNESIUM ZINC WITH VITAMIN D [Concomitant]
  14. MAXI-B (MAXI-B) [Concomitant]
  15. PSYLLIUM (PSYLLIUM) [Concomitant]

REACTIONS (20)
  - ABDOMINAL PAIN [None]
  - COLITIS ISCHAEMIC [None]
  - COMPUTERISED TOMOGRAM ABDOMEN ABNORMAL [None]
  - CONFUSIONAL STATE [None]
  - DIZZINESS [None]
  - HAEMATOCRIT DECREASED [None]
  - HAEMOGLOBIN DECREASED [None]
  - HYPERCALCAEMIA [None]
  - HYPERKALAEMIA [None]
  - HYPOGLYCAEMIA [None]
  - HYPOTENSION [None]
  - INTESTINAL ISCHAEMIA [None]
  - METASTATIC NEOPLASM [None]
  - NAUSEA [None]
  - PORTAL VEIN THROMBOSIS [None]
  - SMALL INTESTINAL OBSTRUCTION [None]
  - UPPER GASTROINTESTINAL HAEMORRHAGE [None]
  - VASODILATATION [None]
  - VOMITING [None]
  - WEIGHT DECREASED [None]
